FAERS Safety Report 8614213-6 (Version None)
Quarter: 2012Q3

REPORT INFORMATION
  Report Type: 
  Country: None (occurrence: None)
  Receive Date: 20120823
  Receipt Date: 20120813
  Transmission Date: 20120928
  Serious: Yes (Hospitalization)
  Sender: FDA-Public Use
  Company Number: FR-009507513-1208FRA006769

PATIENT

DRUGS (6)
  1. INVANZ [Suspect]
     Indication: OSTEITIS
     Dosage: 1 G, BID
     Route: 042
     Dates: start: 20120601, end: 20120610
  2. ZOLPIDEM TARTRATE [Suspect]
     Indication: INSOMNIA
     Dosage: 10 MG, QD
     Route: 048
     Dates: start: 20120521, end: 20120610
  3. TRAMADOL HCL [Suspect]
     Indication: PAIN IN EXTREMITY
     Dosage: 100 MG, QD
     Route: 048
     Dates: start: 20120530, end: 20120608
  4. FLUCONAZOLE [Suspect]
     Indication: FUNGAL INFECTION
     Dosage: 100 MG, BID
     Route: 048
     Dates: start: 20120604, end: 20120610
  5. DITROPAN [Suspect]
     Indication: URINARY INCONTINENCE
     Dosage: 2.5 MG, UNK
     Route: 048
     Dates: start: 20120602, end: 20120608
  6. BACTRIM [Concomitant]
     Route: 048

REACTIONS (4)
  - AGITATION [None]
  - INSOMNIA [None]
  - HYPOKINESIA [None]
  - CONFUSIONAL STATE [None]
